FAERS Safety Report 4533445-X (Version None)
Quarter: 2004Q4

REPORT INFORMATION
  Report Type: 
  Country: None (occurrence: None)
  Receive Date: 20041221
  Receipt Date: 20041213
  Transmission Date: 20050328
  Serious: Yes (Disabling)
  Sender: FDA-Public Use
  Company Number: US-MERCK-0412USA01622

PATIENT
  Age: 92 Year
  Sex: Female

DRUGS (7)
  1. ZOCOR [Suspect]
     Indication: BLOOD CHOLESTEROL INCREASED
     Route: 048
     Dates: start: 20030601, end: 20041001
  2. ZOCOR [Suspect]
     Route: 048
     Dates: start: 20041001, end: 20041201
  3. PLAVIX [Concomitant]
     Route: 065
  4. NORVASC [Concomitant]
     Route: 065
  5. ASPIRIN [Concomitant]
     Route: 065
  6. FOLIC ACID [Concomitant]
     Route: 065
  7. PYRIDOXINE [Concomitant]
     Route: 065

REACTIONS (4)
  - ARTHRALGIA [None]
  - BACK PAIN [None]
  - BONE PAIN [None]
  - OEDEMA PERIPHERAL [None]
